FAERS Safety Report 6220213-6 (Version None)
Quarter: 2009Q2

REPORT INFORMATION
  Report Type: 
  Country: None (occurrence: None)
  Receive Date: 20090605
  Receipt Date: 20090520
  Transmission Date: 20091009
  Serious: Yes (Life-Threatening, Hospitalization)
  Sender: FDA-Public Use
  Company Number: 2009S1009028

PATIENT
  Age: 69 Year
  Sex: Female

DRUGS (11)
  1. ZOLIPIDEM        (ZOLPIDEM) [Suspect]
     Indication: SLEEP DISORDER
     Dosage: 10 MG; 1_NULL_DAY
     Route: 048
     Dates: start: 20060101, end: 20090313
  2. RAMIPRIL [Suspect]
     Indication: HYPERTENSION
     Dosage: TABLET; ORAL
     Route: 048
     Dates: start: 20000101, end: 20090315
  3. THEOPHYLLINE [Suspect]
     Indication: CHRONIC OBSTRUCTIVE PULMONARY DISEASE
     Dosage: 250 MG; PROLONGED-RELEASE CAPSULE: ORAL; TWICE A DAY
     Route: 048
     Dates: start: 20050101
  4. THEOPHYLLINE [Suspect]
     Indication: CHRONIC OBSTRUCTIVE PULMONARY DISEASE
     Dosage: 250 MG; PROLONGED-RELEASE CAPSULE: ORAL; TWICE A DAY
     Route: 048
     Dates: start: 20050101
  5. PANTOPRAZOLE SODIUM [Suspect]
     Indication: PROPHYLAXIS AGAINST GASTROINTESTINAL ULCER
     Dosage: 20 MG; ORAL; 1_NULL_DAY; 20 MG; 1_NULL_DAY
     Route: 048
     Dates: start: 20080101
  6. HALOPERIDOL [Suspect]
     Indication: RESTLESSNESS
     Dosage: 1 MG;TABLET; ORAL; TWICE A DAY; 1 MG; TWICE A DAY
     Route: 048
     Dates: start: 20070101, end: 20090313
  7. METAMIZOLE        (METAMIZOLE) [Concomitant]
  8. NEBIVOLOL HCL [Concomitant]
  9. CLOPIDOGREL [Concomitant]
  10. IBUPROFEN [Concomitant]
  11. CALCIUM (CALCIUM) [Concomitant]

REACTIONS (15)
  - ANAEMIA [None]
  - COLD SWEAT [None]
  - DRUG INTERACTION [None]
  - DYSARTHRIA [None]
  - DYSPNOEA [None]
  - ELECTROCARDIOGRAM ST SEGMENT DEPRESSION [None]
  - ELECTROCARDIOGRAM ST SEGMENT ELEVATION [None]
  - FEELING HOT [None]
  - HYPERKINESIA [None]
  - HYPONATRAEMIA [None]
  - NAUSEA [None]
  - NERVOUSNESS [None]
  - RESTLESSNESS [None]
  - RHABDOMYOLYSIS [None]
  - SINUS TACHYCARDIA [None]
